FAERS Safety Report 4575919-1 (Version None)
Quarter: 2005Q1

REPORT INFORMATION
  Report Type: 
  Country: None (occurrence: None)
  Receive Date: 20050201
  Receipt Date: 20050201
  Transmission Date: 20050727
  Serious: Yes (Life-Threatening, Hospitalization)
  Sender: FDA-Public Use
  Company Number: None

PATIENT
  Age: 61 Year
  Sex: Female
  Weight: 39.9982 kg

DRUGS (4)
  1. CISPLATIN [Suspect]
     Indication: NEOPLASM RECURRENCE
     Dosage: 30 MG/  Q WEEK 1.2  INTRAVENOUS
     Route: 042
     Dates: start: 20041220, end: 20050117
  2. CISPLATIN [Suspect]
     Indication: SQUAMOUS CELL CARCINOMA
     Dosage: 30 MG/  Q WEEK 1.2  INTRAVENOUS
     Route: 042
     Dates: start: 20041220, end: 20050117
  3. CPT-11 [Suspect]
     Indication: NEOPLASM RECURRENCE
     Dosage: 50 MG / Q WEEK 1  INTRAVENOUS
     Route: 042
     Dates: start: 20041220, end: 20050117
  4. CPT-11 [Suspect]
     Indication: SQUAMOUS CELL CARCINOMA
     Dosage: 50 MG / Q WEEK 1  INTRAVENOUS
     Route: 042
     Dates: start: 20041220, end: 20050117

REACTIONS (1)
  - PULMONARY EMBOLISM [None]
